FAERS Safety Report 23815381 (Version 1)
Quarter: 2024Q2

REPORT INFORMATION
  Report Type: Spontaneous
  Country: US (occurrence: US)
  Receive Date: 20240503
  Receipt Date: 20240503
  Transmission Date: 20240715
  Serious: No
  Sender: FDA-Public Use
  Company Number: US-TEVA-VS-3188345

PATIENT

DRUGS (2)
  1. AJOVY [Suspect]
     Active Substance: FREMANEZUMAB-VFRM
     Indication: Product used for unknown indication
     Dosage: 225 MG / 1.5 ML
     Route: 065
  2. AJOVY [Suspect]
     Active Substance: FREMANEZUMAB-VFRM

REACTIONS (4)
  - Nasopharyngitis [Recovered/Resolved]
  - Fatigue [Recovered/Resolved]
  - Device issue [Unknown]
  - Influenza [Recovered/Resolved]

NARRATIVE: CASE EVENT DATE: 20240201
